FAERS Safety Report 4483515-X (Version None)
Quarter: 2004Q4

REPORT INFORMATION
  Report Type: 
  Country: None (occurrence: None)
  Receive Date: 20041025
  Receipt Date: 20041013
  Transmission Date: 20050328
  Serious: Yes (Hospitalization)
  Sender: FDA-Public Use
  Company Number: US-JNJFOC-20040803100

PATIENT
  Sex: Female
  Weight: 144.7 kg

DRUGS (14)
  1. REMICADE [Suspect]
     Indication: RHEUMATOID ARTHRITIS
     Route: 042
  2. METHOTREXATE [Concomitant]
  3. PREDNISONE [Concomitant]
  4. PLAQUENIL [Concomitant]
  5. PROTONIX [Concomitant]
  6. HYZAAR [Concomitant]
  7. HYZAAR [Concomitant]
  8. TEGRETOL [Concomitant]
  9. RELAFEN [Concomitant]
  10. TRAZODONE HCL [Concomitant]
  11. PEPCID [Concomitant]
  12. DARVOCET [Concomitant]
  13. DARVOCET [Concomitant]
  14. MICROGESTIN FE [Concomitant]

REACTIONS (2)
  - CHEST PAIN [None]
  - OXYGEN SATURATION DECREASED [None]
